FAERS Safety Report 7418315-1 (Version None)
Quarter: 2011Q2

REPORT INFORMATION
  Report Type: 
  Country: None (occurrence: None)
  Receive Date: 20110415
  Receipt Date: 20110413
  Transmission Date: 20111010
  Serious: Yes (Hospitalization, Congenital Anomaly)
  Sender: FDA-Public Use
  Company Number: A0687278A

PATIENT
  Sex: Male

DRUGS (5)
  1. ALBUTEROL [Concomitant]
     Indication: ASTHMA
     Route: 064
  2. ADVAIR HFA [Concomitant]
     Indication: ASTHMA
     Route: 064
  3. PAXIL CR [Suspect]
     Dosage: 25MG UNKNOWN
     Route: 064
     Dates: start: 19940101
  4. PRENATAL VITAMINS [Concomitant]
     Route: 064
  5. PAXIL [Suspect]
     Indication: SOCIAL PHOBIA
     Dosage: 20MG PER DAY
     Route: 064
     Dates: start: 19940101, end: 19950101

REACTIONS (11)
  - ATRIAL SEPTAL DEFECT [None]
  - SELF ESTEEM DECREASED [None]
  - CONGENITAL AORTIC STENOSIS [None]
  - MITRAL VALVE DISEASE [None]
  - HEART DISEASE CONGENITAL [None]
  - DRUG EXPOSURE DURING PREGNANCY [None]
  - CARDIAC MURMUR [None]
  - MITRAL VALVE INCOMPETENCE [None]
  - MITRAL VALVE STENOSIS [None]
  - EDUCATIONAL PROBLEM [None]
  - ATRIOVENTRICULAR SEPTAL DEFECT [None]
